FAERS Safety Report 7827084-2 (Version None)
Quarter: 2011Q4

REPORT INFORMATION
  Report Type: 
  Country: None (occurrence: None)
  Receive Date: 20111020
  Receipt Date: 20111010
  Transmission Date: 20120403
  Serious: Yes (Other)
  Sender: FDA-Public Use
  Company Number: US-JNJFOC-20111004849

PATIENT
  Sex: Female
  Weight: 68.04 kg

DRUGS (2)
  1. TOPAMAX [Suspect]
     Indication: MIGRAINE
     Route: 048
     Dates: start: 20030101, end: 20110930
  2. PRISTIQ [Suspect]
     Indication: DEPRESSION
     Route: 048
     Dates: start: 20080101

REACTIONS (5)
  - VISUAL IMPAIRMENT [None]
  - DEPRESSION [None]
  - DRUG DOSE OMISSION [None]
  - WITHDRAWAL SYNDROME [None]
  - HEADACHE [None]
